FAERS Safety Report 9665820 (Version 1)
Quarter: 2013Q4

REPORT INFORMATION
  Report Type: Spontaneous
  Country: US (occurrence: None)
  Receive Date: 20131031
  Receipt Date: 20131031
  Transmission Date: 20140711
  Serious: Yes (Life-Threatening, Hospitalization)
  Sender: FDA-Public Use
  Company Number: None

PATIENT
  Age: 53 Year
  Sex: Female
  Weight: 114.31 kg

DRUGS (16)
  1. METOPROLOL [Suspect]
     Indication: HYPERTENSION
     Route: 048
     Dates: start: 1999, end: 20130907
  2. AMLODIPINE [Concomitant]
  3. DIPHENHYDRAMINE AMINE (BENADRYL) [Concomitant]
  4. EPIPEN [Concomitant]
  5. WAL-ORYL ALLERGY MINITABS [Concomitant]
  6. PREDNISONE [Concomitant]
  7. POTASSIUM [Concomitant]
  8. FUROSEMIDE [Concomitant]
  9. FAMOTIDINE [Concomitant]
  10. CETIRIZINE [Concomitant]
  11. ALPRAZOLAM [Concomitant]
  12. AMLODIPINE BESYLATE [Concomitant]
  13. FERROUS SULFATE [Concomitant]
  14. IRON [Concomitant]
  15. THERAPUETIC MULTIVITAMINS [Concomitant]
  16. ASPIRIN [Concomitant]

REACTIONS (6)
  - Depression [None]
  - Pharyngeal oedema [None]
  - Dyspnoea [None]
  - Insomnia [None]
  - Dysphonia [None]
  - Asthenia [None]
